FAERS Safety Report 15681478 (Version 1)
Quarter: 2018Q4

REPORT INFORMATION
  Report Type: Spontaneous
  Country: FR (occurrence: FR)
  Receive Date: 20181203
  Receipt Date: 20181203
  Transmission Date: 20190205
  Serious: Yes (Other)
  Sender: FDA-Public Use
  Company Number: FR-SA-2018SA280901

PATIENT
  Age: 44 Year
  Sex: Female

DRUGS (2)
  1. DOXYLAMINE SUCCINATE. [Suspect]
     Active Substance: DOXYLAMINE SUCCINATE
     Indication: PRODUCT USED FOR UNKNOWN INDICATION
     Dosage: UNK UNK, UNK, 10 CANS
     Route: 048
  2. TOPLEXIL (GUAIFENESIN, OXOMEMAZINE, PARACETAMOL, SODIUM BENZOATE) [Suspect]
     Active Substance: ACETAMINOPHEN\GUAIFENESIN\OXOMEMAZINE\SODIUM BENZOATE
     Indication: PRODUCT USED FOR UNKNOWN INDICATION
     Dosage: UNK UNK, UNK, 4 BOTTLES
     Route: 048

REACTIONS (2)
  - Sedation [Recovering/Resolving]
  - Drug abuse [Recovering/Resolving]
